FAERS Safety Report 13337092 (Version 1)
Quarter: 2017Q1

REPORT INFORMATION
  Report Type: Report from Study
  Country: JP (occurrence: JP)
  Receive Date: 20170315
  Receipt Date: 20170315
  Transmission Date: 20170428
  Serious: Yes (Death)
  Sender: FDA-Public Use
  Company Number: JP-UCBSA-2017009660

PATIENT
  Age: 50 Year
  Sex: Female

DRUGS (2)
  1. LEVETIRACETAM. [Suspect]
     Active Substance: LEVETIRACETAM
     Indication: CLONIC CONVULSION
     Dosage: 500 MG, ONCE DAILY (QD)
     Route: 041
     Dates: start: 20160526, end: 20160526
  2. LEVETIRACETAM. [Suspect]
     Active Substance: LEVETIRACETAM
     Indication: OFF LABEL USE
     Dosage: 500 MG WAS ADMINISTERED AT 01:00, 1000 MG AT 09:00, AND 1000 MG AT 18:00, 3X/DAY (TID)
     Route: 041
     Dates: start: 20160527, end: 20160527

REACTIONS (2)
  - Off label use [Unknown]
  - Death [Fatal]

NARRATIVE: CASE EVENT DATE: 20160526
